FAERS Safety Report 20592237 (Version 1)
Quarter: 2022Q1

REPORT INFORMATION
  Report Type: Spontaneous
  Country: US (occurrence: None)
  Receive Date: 20220314
  Receipt Date: 20220314
  Transmission Date: 20220424
  Serious: No
  Sender: FDA-Public Use
  Company Number: US-ROCHE-2851885

PATIENT
  Sex: Female

DRUGS (11)
  1. XOLAIR [Suspect]
     Active Substance: OMALIZUMAB
     Indication: Upper respiratory tract infection
     Route: 058
  2. XOLAIR [Suspect]
     Active Substance: OMALIZUMAB
     Indication: Upper respiratory tract infection
  3. XOLAIR [Suspect]
     Active Substance: OMALIZUMAB
     Indication: Upper respiratory tract infection
  4. WELLBUTRIN SR [Concomitant]
     Active Substance: BUPROPION HYDROCHLORIDE
  5. AMPHETAMINE\DEXTROAMPHETAMINE [Concomitant]
     Active Substance: AMPHETAMINE\DEXTROAMPHETAMINE
     Dosage: 20 MG
  6. AZELASTINE [Concomitant]
     Active Substance: AZELASTINE
     Dosage: SPR 0.15%
  7. FLUTICASONE [Concomitant]
     Active Substance: FLUTICASONE
     Dosage: CREAM 0.05%
  8. LAMOTIGIN [Concomitant]
  9. MELOXICAM [Concomitant]
     Active Substance: MELOXICAM
  10. PREDNISONE [Concomitant]
     Active Substance: PREDNISONE
  11. QUETIAPINE [Concomitant]
     Active Substance: QUETIAPINE

REACTIONS (2)
  - Drug ineffective [Unknown]
  - No adverse event [Unknown]
